FAERS Safety Report 9731253 (Version 2)
Quarter: 2013Q4

REPORT INFORMATION
  Report Type: Report from Study
  Country: DE (occurrence: DE)
  Receive Date: 20131205
  Receipt Date: 20131205
  Transmission Date: 20140711
  Serious: Yes (Death)
  Sender: FDA-Public Use
  Company Number: DE-BEH-2013038247

PATIENT
  Age: 67 Year
  Sex: Male
  Weight: 75 kg

DRUGS (3)
  1. PRIVIGEN [Suspect]
     Indication: SECONDARY IMMUNODEFICIENCY
     Dosage: INFUSION RATE: MIN 1.66 ML/ MIN, MAX. 1.66 ML/ MIN
     Dates: start: 20130228, end: 20130228
  2. METOPROLOL [Concomitant]
  3. RAMIPRIL [Concomitant]

REACTIONS (1)
  - Plasma cell myeloma [Fatal]
